FAERS Safety Report 8230059-5 (Version None)
Quarter: 2012Q1

REPORT INFORMATION
  Report Type: 
  Country: None (occurrence: None)
  Receive Date: 20120323
  Receipt Date: 20120319
  Transmission Date: 20120608
  Serious: No
  Sender: FDA-Public Use
  Company Number: US-PFIZER INC-2012072700

PATIENT
  Sex: Female
  Weight: 63.039 kg

DRUGS (9)
  1. PROZAC [Suspect]
     Indication: ANXIETY
  2. EFFEXOR XR [Suspect]
     Dosage: 200 MG, UNK
  3. EFFEXOR XR [Suspect]
     Dosage: 300 MG, UNK
  4. EFFEXOR XR [Suspect]
     Indication: DEPRESSION
     Dosage: 35 MG, UNK
     Dates: start: 20000101
  5. EFFEXOR XR [Suspect]
     Indication: ANXIETY
     Dosage: 150 MG, UNK
  6. VENLAFAXINE HCL [Suspect]
     Indication: ANXIETY
  7. TRAZODONE [Concomitant]
     Indication: SLEEP DISORDER
     Dosage: 25 MG, UNK
  8. VENLAFAXINE HCL [Suspect]
     Indication: DEPRESSION
     Dosage: OF TWO TABLETS OF 150 MG DAILY
  9. PROZAC [Suspect]
     Indication: DEPRESSION
     Dosage: UNK

REACTIONS (1)
  - DRUG INEFFECTIVE [None]
